FAERS Safety Report 22257999 (Version 2)
Quarter: 2024Q1

REPORT INFORMATION
  Report Type: Report from Study
  Country: CO (occurrence: CO)
  Receive Date: 20230427
  Receipt Date: 20240216
  Transmission Date: 20240410
  Serious: Yes (Hospitalization)
  Sender: FDA-Public Use
  Company Number: CO-BIOGEN-2023BI01201530

PATIENT
  Age: 65 Year
  Sex: Female
  Weight: 52 kg

DRUGS (5)
  1. TECFIDERA [Suspect]
     Active Substance: DIMETHYL FUMARATE
     Indication: Multiple sclerosis
     Dosage: 1 ORAL CAPSULE OF 240 MG OF TECFIDERA (DIMETHYL FUMARATE) TWICE A DAY
     Route: 050
     Dates: start: 201808, end: 20230414
  2. TECFIDERA [Suspect]
     Active Substance: DIMETHYL FUMARATE
     Dosage: 1 ORAL CAPSULE OF 240 MG PER DAY
     Route: 050
     Dates: start: 20230414, end: 20230416
  3. TECFIDERA [Suspect]
     Active Substance: DIMETHYL FUMARATE
     Dosage: 1 ORAL CAPSULE OF 240 MG OF TECFIDERA (DIMETHYL FUMARATE) TWICE A DAY
     Route: 050
     Dates: start: 20230417
  4. TECFIDERA [Suspect]
     Active Substance: DIMETHYL FUMARATE
     Dosage: 1 ORAL CAPSULE OF 240 MG OF TECFIDERA (DIMETHYL FUMARATE) TWICE A DAY
     Route: 050
     Dates: end: 20240206
  5. DALFAMPRIDINE [Suspect]
     Active Substance: DALFAMPRIDINE
     Indication: Gait disturbance
     Dosage: 1 ORAL TABLET OF 10 MG OF FAMPYRA (FAMPRIDINE) EVERY 12 HOURS
     Route: 050
     Dates: start: 201409

REACTIONS (1)
  - Multiple sclerosis relapse [Recovered/Resolved]

NARRATIVE: CASE EVENT DATE: 20230101
